FAERS Safety Report 7842006-6 (Version None)
Quarter: 2011Q4

REPORT INFORMATION
  Report Type: 
  Country: None (occurrence: None)
  Receive Date: 20111025
  Receipt Date: 20111018
  Transmission Date: 20120403
  Serious: Yes (Death)
  Sender: FDA-Public Use
  Company Number: US-AMGEN-USASP2011054024

PATIENT
  Sex: Female

DRUGS (2)
  1. IVIGLOB-EX [Concomitant]
     Indication: THROMBOCYTOPENIA
  2. NPLATE [Suspect]
     Indication: THROMBOCYTOPENIA
     Dosage: 49.4 MUG, UNK
     Dates: start: 20110817, end: 20110902

REACTIONS (1)
  - NON-HODGKIN'S LYMPHOMA [None]
